FAERS Safety Report 5067695-3 (Version None)
Quarter: 2006Q3

REPORT INFORMATION
  Report Type: 
  Country: None (occurrence: None)
  Receive Date: 20060731
  Receipt Date: 20060717
  Transmission Date: 20061208
  Serious: Yes (Death, Hospitalization)
  Sender: FDA-Public Use
  Company Number: A-US2006-12625

PATIENT
  Age: 71 Year
  Sex: Female

DRUGS (11)
  1. TRACLEER [Suspect]
     Indication: PULMONARY HYPERTENSION
     Dosage: 125 MG, BID, ORAL
     Route: 048
     Dates: end: 20060712
  2. ADVAIR DISKUS 100/50 [Concomitant]
  3. NEXIUM [Concomitant]
  4. PREDNISONE TAB [Concomitant]
  5. REMODULIN [Concomitant]
  6. LASIX [Concomitant]
  7. CELEBREX [Concomitant]
  8. DIGOXIN [Concomitant]
  9. GLIPIZIDE [Concomitant]
  10. METFORMIN (METFORMIN) [Concomitant]
  11. OXYGEN (OXYGEN) [Concomitant]

REACTIONS (1)
  - FALL [None]
